FAERS Safety Report 4922168-0 (Version None)
Quarter: 2006Q1

REPORT INFORMATION
  Report Type: 
  Country: None (occurrence: None)
  Receive Date: 20060224
  Receipt Date: 20050203
  Transmission Date: 20060701
  Serious: Yes (Hospitalization)
  Sender: FDA-Public Use
  Company Number: US-MERCK-0502USA00527

PATIENT
  Age: 51 Year
  Sex: Female
  Weight: 70 kg

DRUGS (11)
  1. VIOXX [Suspect]
     Indication: ARTHRITIS
     Route: 048
     Dates: start: 20010101, end: 20040101
  2. DEMADEX [Concomitant]
     Route: 048
  3. ACCUPRIL [Concomitant]
     Route: 065
  4. INDERAL LA [Concomitant]
     Route: 065
  5. GLUCOPHAGE [Concomitant]
     Route: 065
  6. POTASSIUM (UNSPECIFIED) [Concomitant]
     Route: 065
  7. PREMARIN [Concomitant]
     Route: 065
  8. EFFEXOR [Concomitant]
     Route: 065
  9. LIPITOR [Concomitant]
     Route: 065
  10. PEPCID [Concomitant]
     Route: 065
  11. EFFEXOR XR [Concomitant]
     Route: 065

REACTIONS (12)
  - ACUTE MYOCARDIAL INFARCTION [None]
  - ARTERIAL DISORDER [None]
  - BACK DISORDER [None]
  - CORONARY ARTERY DISEASE [None]
  - DEPRESSION [None]
  - DIABETES MELLITUS [None]
  - HAEMOPTYSIS [None]
  - HAEMOTHORAX [None]
  - INTERVERTEBRAL DISC DEGENERATION [None]
  - RESTRICTIVE PULMONARY DISEASE [None]
  - SYNOVIAL CYST [None]
  - THROMBOSIS [None]
